FAERS Safety Report 15430397 (Version 1)
Quarter: 2018Q3

REPORT INFORMATION
  Report Type: Spontaneous
  Country: US (occurrence: US)
  Receive Date: 20180920
  Receipt Date: 20180920
  Transmission Date: 20181010
  Serious: No
  Sender: FDA-Public Use
  Company Number: None

PATIENT
  Sex: Female

DRUGS (1)
  1. CAPECITABINE TAB [Suspect]
     Active Substance: CAPECITABINE
     Route: 048
     Dates: start: 20180911, end: 20180918

REACTIONS (8)
  - Fatigue [None]
  - Hypoaesthesia [None]
  - Sleep disorder [None]
  - Balance disorder [None]
  - Dizziness [None]
  - Asthenia [None]
  - Decreased appetite [None]
  - Depression [None]
